FAERS Safety Report 20583143 (Version 1)
Quarter: 2022Q1

REPORT INFORMATION
  Report Type: Spontaneous
  Country: CN (occurrence: CN)
  Receive Date: 20220311
  Receipt Date: 20220311
  Transmission Date: 20220423
  Serious: Yes (Other)
  Sender: FDA-Public Use
  Company Number: CN-PFIZER INC-202200364934

PATIENT
  Age: 45 Year
  Sex: Female

DRUGS (3)
  1. METHOTREXATE [Suspect]
     Active Substance: METHOTREXATE
     Indication: Stem cell transplant
     Dosage: 23 MG, 1X/DAY
     Route: 041
     Dates: start: 20220224, end: 20220224
  2. METHOTREXATE [Suspect]
     Active Substance: METHOTREXATE
     Dosage: 23 MG, 1X/DAY
     Route: 041
     Dates: start: 20220226, end: 20220226
  3. METHOTREXATE [Suspect]
     Active Substance: METHOTREXATE
     Dosage: 23 MG, 1X/DAY
     Route: 041
     Dates: start: 20220301, end: 20220301

REACTIONS (3)
  - Hypoaesthesia oral [Recovering/Resolving]
  - Nausea [Recovering/Resolving]
  - Off label use [Unknown]

NARRATIVE: CASE EVENT DATE: 20220224
